FAERS Safety Report 17764054 (Version 2)
Quarter: 2020Q2

REPORT INFORMATION
  Report Type: Spontaneous
  Country: CA (occurrence: CA)
  Receive Date: 20200511
  Receipt Date: 20200621
  Transmission Date: 20200714
  Serious: Yes (Other)
  Sender: FDA-Public Use
  Company Number: CA-CELLTRION INC.-2020CA022150

PATIENT

DRUGS (10)
  1. INFLECTRA [Suspect]
     Active Substance: INFLIXIMAB-DYYB
     Dosage: 5MG/KG WEEKS 0, 2, 6, THEN EVERY 8 WEEKS
     Route: 042
     Dates: start: 20200331
  2. ASACOL [Concomitant]
     Active Substance: MESALAMINE
     Dosage: 800 MG, 3X/DAY
     Route: 048
  3. PANTOLOC [PANTOPRAZOLE] [Concomitant]
     Active Substance: PANTOPRAZOLE SODIUM
     Dosage: 9 MG, 1X/DAY
     Route: 065
  4. INFLECTRA [Suspect]
     Active Substance: INFLIXIMAB-DYYB
     Dosage: 500 MG WEEKS 0, 2, 6, THEN EVERY 8 WEEKS
     Route: 042
     Dates: start: 20200501
  5. INFLECTRA [Suspect]
     Active Substance: INFLIXIMAB-DYYB
     Dosage: 500 MG WEEKS 0, 2, 6, THEN EVERY 8 WEEKS
     Route: 042
     Dates: start: 20200501
  6. REMERON [Concomitant]
     Active Substance: MIRTAZAPINE
     Dosage: 15 MG, 1X/DAY
     Route: 065
  7. INFLECTRA [Suspect]
     Active Substance: INFLIXIMAB-DYYB
     Indication: COLITIS ULCERATIVE
     Dosage: 5MG/KG WEEKS 0, 2, 6, THEN EVERY 8 WEEKS
     Route: 042
     Dates: start: 20200314
  8. ENSURE [NUTRIENTS NOS] [Concomitant]
     Dosage: UNK
     Route: 065
  9. METHADONE [Concomitant]
     Active Substance: METHADONE HYDROCHLORIDE
     Dosage: 6 MG, 1X/DAY
     Route: 065
  10. MELATONIN [Concomitant]
     Active Substance: MELATONIN
     Dosage: 9 MG, 1X/DAY
     Route: 065

REACTIONS (3)
  - Weight decreased [Unknown]
  - Psoriasis [Unknown]
  - Incorrect dose administered [Unknown]

NARRATIVE: CASE EVENT DATE: 20200501
